FAERS Safety Report 4434815-0 (Version None)
Quarter: 2004Q3

REPORT INFORMATION
  Report Type: 
  Country: None (occurrence: None)
  Receive Date: 20040827
  Receipt Date: 20040818
  Transmission Date: 20050211
  Serious: Yes (Death, Other)
  Sender: FDA-Public Use
  Company Number: PHBS2004JP10890

PATIENT
  Age: 80 Year
  Sex: Male

DRUGS (1)
  1. CYCLOSPORINE [Suspect]
     Indication: MYELODYSPLASTIC SYNDROME
     Dosage: 2.5 MG/KG/DAY
     Route: 065

REACTIONS (3)
  - CHROMOSOME ABNORMALITY [None]
  - LUNG NEOPLASM MALIGNANT [None]
  - RENAL IMPAIRMENT [None]
